FAERS Safety Report 20315365 (Version 1)
Quarter: 2022Q1

REPORT INFORMATION
  Report Type: Spontaneous
  Country: DE (occurrence: DE)
  Receive Date: 20220110
  Receipt Date: 20220110
  Transmission Date: 20220423
  Serious: Yes (Other)
  Sender: FDA-Public Use
  Company Number: DE-AstraZeneca-2021A551264

PATIENT
  Age: 45 Year
  Sex: Female
  Weight: 118 kg

DRUGS (6)
  1. ESCITALOPRAM [Suspect]
     Active Substance: ESCITALOPRAM OXALATE
     Indication: Product used for unknown indication
     Dosage: UNK
     Route: 065
  2. METAMIZOLE [Suspect]
     Active Substance: METAMIZOLE
     Indication: Product used for unknown indication
     Dosage: UNK
     Route: 065
  3. VAXZEVRIA [Suspect]
     Active Substance: AZD-1222
     Indication: Immunisation
     Dosage: 1 DOSAGE FORM (DOSE 1)
     Route: 030
     Dates: start: 20210312
  4. DICLOFENAC [Concomitant]
     Active Substance: DICLOFENAC
     Indication: Product used for unknown indication
     Dosage: UNK
     Route: 065
  5. IBU [Concomitant]
     Active Substance: IBUPROFEN
     Indication: Product used for unknown indication
     Dosage: UNK
     Route: 065
  6. Para [Concomitant]
     Indication: Product used for unknown indication
     Dosage: UNK
     Route: 065

REACTIONS (44)
  - Thermal burns of eye [Unknown]
  - Oropharyngeal blistering [Unknown]
  - Hangover [Unknown]
  - Sensation of foreign body [Unknown]
  - Disturbance in attention [Unknown]
  - Headache [Not Recovered/Not Resolved]
  - Dyspnoea [Unknown]
  - Paraesthesia [Unknown]
  - Throat irritation [Unknown]
  - Sensitive skin [Unknown]
  - Hypoaesthesia [Unknown]
  - Secretion discharge [Unknown]
  - Lacrimation increased [Unknown]
  - Vision blurred [Unknown]
  - Rash [Unknown]
  - Renal pain [Unknown]
  - Pain [Unknown]
  - Oropharyngeal pain [Unknown]
  - Burning sensation [Unknown]
  - Fatigue [Unknown]
  - Burning sensation [Unknown]
  - Sinus congestion [Unknown]
  - Feeling drunk [Unknown]
  - Tinnitus [Unknown]
  - Chest discomfort [Unknown]
  - Alopecia [Unknown]
  - Limb discomfort [Unknown]
  - Eye irritation [Unknown]
  - Chills [Unknown]
  - Haematocrit decreased [Unknown]
  - Dizziness [Unknown]
  - Nausea [Unknown]
  - Hot flush [Unknown]
  - Asthenopia [Unknown]
  - Decreased appetite [Unknown]
  - Insomnia [Unknown]
  - Discomfort [Unknown]
  - Fall [Unknown]
  - Injury associated with device [Unknown]
  - Tongue coated [Unknown]
  - Dry skin [Unknown]
  - Epistaxis [Unknown]
  - Nasal discomfort [Unknown]
  - Asthenia [Unknown]

NARRATIVE: CASE EVENT DATE: 20210312
